FAERS Safety Report 5855053-0 (Version None)
Quarter: 2008Q3

REPORT INFORMATION
  Report Type: 
  Country: None (occurrence: None)
  Receive Date: 20080822
  Receipt Date: 20080612
  Transmission Date: 20090109
  Serious: No
  Sender: FDA-Public Use
  Company Number: US-ABBOTT-08P-163-0457133-00

PATIENT
  Age: 82 Year
  Sex: Female

DRUGS (8)
  1. SYNTHROID [Suspect]
     Indication: HYPOTHYROIDISM
     Route: 048
  2. DIAVAN [Concomitant]
     Indication: DRUG USE FOR UNKNOWN INDICATION
  3. LORAZAPEM [Concomitant]
     Indication: DRUG USE FOR UNKNOWN INDICATION
  4. ATORVASTATIN CALCIUM [Concomitant]
     Indication: DRUG USE FOR UNKNOWN INDICATION
  5. ACETYLSALICYLIC ACID SRT [Concomitant]
     Indication: DRUG USE FOR UNKNOWN INDICATION
     Route: 048
  6. CALCIUM CARBONATE [Concomitant]
     Indication: DRUG USE FOR UNKNOWN INDICATION
  7. PRESERVISION [Concomitant]
     Indication: VITAMIN SUPPLEMENTATION
  8. PRESERVISION [Concomitant]
     Indication: MINERAL SUPPLEMENTATION

REACTIONS (6)
  - ABDOMINAL PAIN UPPER [None]
  - ANAL PRURITUS [None]
  - FATIGUE [None]
  - INSOMNIA [None]
  - LISTLESS [None]
  - VULVOVAGINAL PRURITUS [None]
